FAERS Safety Report 15390506 (Version 1)
Quarter: 2018Q3

REPORT INFORMATION
  Report Type: Spontaneous
  Country: GB (occurrence: GB)
  Receive Date: 20180917
  Receipt Date: 20180917
  Transmission Date: 20181010
  Serious: Yes (Other)
  Sender: FDA-Public Use
  Company Number: GB-ACCORD-071664

PATIENT
  Age: 4 Year
  Sex: Female

DRUGS (4)
  1. DOXORUBICIN [Suspect]
     Active Substance: DOXORUBICIN
     Indication: ADRENOCORTICAL CARCINOMA
  2. HYDROCORTISONE. [Suspect]
     Active Substance: HYDROCORTISONE
     Indication: FEBRILE NEUTROPENIA
     Dosage: INITIALLY IV THEN ORAL
     Route: 048
  3. MITOTANE [Suspect]
     Active Substance: MITOTANE
     Indication: ADRENOCORTICAL CARCINOMA
     Dosage: MITOTANE WAS GRADUALLY?INCREASED TO 2.5 G/M2/DAY
  4. CISPLATIN. [Suspect]
     Active Substance: CISPLATIN
     Indication: ADRENOCORTICAL CARCINOMA

REACTIONS (6)
  - Renal salt-wasting syndrome [Unknown]
  - Pigmentation disorder [Unknown]
  - Febrile neutropenia [Unknown]
  - Fatigue [Unknown]
  - Hypotension [Unknown]
  - Hypothyroidism [Unknown]
